FAERS Safety Report 12642136 (Version 1)
Quarter: 2016Q3

REPORT INFORMATION
  Report Type: Spontaneous
  Country: US (occurrence: US)
  Receive Date: 20160810
  Receipt Date: 20160810
  Transmission Date: 20161109
  Serious: No
  Sender: FDA-Public Use
  Company Number: US-GILEAD-2016-0226651

PATIENT
  Sex: Male

DRUGS (3)
  1. RANEXA [Suspect]
     Active Substance: RANOLAZINE
     Indication: PRODUCT USED FOR UNKNOWN INDICATION
     Dosage: 500 MG, BID
     Route: 065
  2. RANEXA [Suspect]
     Active Substance: RANOLAZINE
     Dosage: 1000 MG, QD
     Route: 065
     Dates: start: 20160624
  3. RANEXA [Suspect]
     Active Substance: RANOLAZINE
     Dosage: 1000 MG, BID
     Route: 065
     Dates: start: 201607

REACTIONS (9)
  - Migraine [Unknown]
  - Confusional state [Unknown]
  - Disorientation [Unknown]
  - Accidental overdose [Unknown]
  - Fall [Unknown]
  - Disturbance in attention [Unknown]
  - Vision blurred [Unknown]
  - Dizziness [Unknown]
  - Constipation [Unknown]

NARRATIVE: CASE EVENT DATE: 201607
